FAERS Safety Report 13434044 (Version 1)
Quarter: 2017Q2

REPORT INFORMATION
  Report Type: Spontaneous
  Country: DE (occurrence: DE)
  Receive Date: 20170412
  Receipt Date: 20170412
  Transmission Date: 20170830
  Serious: Yes (Life-Threatening, Hospitalization, Other)
  Sender: FDA-Public Use
  Company Number: DE-JNJFOC-20170404652

PATIENT
  Age: 69 Year
  Sex: Male

DRUGS (6)
  1. XARELTO [Suspect]
     Active Substance: RIVAROXABAN
     Indication: ATRIAL FIBRILLATION
     Route: 048
     Dates: start: 201210
  2. BISOPROLOL [Concomitant]
     Active Substance: BISOPROLOL
     Route: 065
  3. EXFORGE HCT [Concomitant]
     Active Substance: AMLODIPINE BESYLATE\HYDROCHLOROTHIAZIDE\VALSARTAN
     Route: 065
  4. ASPIRIN. [Suspect]
     Active Substance: ASPIRIN
     Indication: PERIPHERAL ARTERY OCCLUSION
     Route: 065
  5. PANTOPRAZOLE [Concomitant]
     Active Substance: PANTOPRAZOLE
     Route: 065
  6. ALLOPURINOL. [Concomitant]
     Active Substance: ALLOPURINOL
     Route: 065

REACTIONS (5)
  - Melaena [Recovered/Resolved]
  - Gastrointestinal haemorrhage [Unknown]
  - Ulcer [Recovered/Resolved]
  - Dieulafoy^s vascular malformation [Recovered/Resolved]
  - Dieulafoy^s vascular malformation [Recovered/Resolved]

NARRATIVE: CASE EVENT DATE: 201301
